FAERS Safety Report 21265837 (Version 1)
Quarter: 2022Q3

REPORT INFORMATION
  Report Type: Spontaneous
  Country: US (occurrence: None)
  Receive Date: 20220826
  Receipt Date: 20220826
  Transmission Date: 20221026
  Serious: No
  Sender: FDA-Public Use
  Company Number: None

PATIENT
  Age: 80 Year
  Sex: Male

DRUGS (1)
  1. AMANTADINE HYDROCHLORIDE [Suspect]
     Active Substance: AMANTADINE HYDROCHLORIDE
     Indication: Movement disorder
     Dosage: 1 TAB BID PO
     Route: 048
     Dates: start: 20180427, end: 20220314

REACTIONS (2)
  - Corneal oedema [None]
  - Eye swelling [None]

NARRATIVE: CASE EVENT DATE: 20220303
